FAERS Safety Report 16676789 (Version 1)
Quarter: 2019Q3

REPORT INFORMATION
  Report Type: Spontaneous
  Country: IN (occurrence: IN)
  Receive Date: 20190807
  Receipt Date: 20190807
  Transmission Date: 20191004
  Serious: Yes (Other)
  Sender: FDA-Public Use
  Company Number: IN-LUPIN PHARMACEUTICALS INC.-2019-04989

PATIENT
  Age: 55 Year
  Sex: Male

DRUGS (2)
  1. TINIDAZOLE. [Suspect]
     Active Substance: TINIDAZOLE
     Indication: DIARRHOEA
     Dosage: UNK
     Route: 065
  2. FLUCONAZOLE. [Suspect]
     Active Substance: FLUCONAZOLE
     Indication: BODY TINEA
     Dosage: 150 MILLIGRAM, PER WEEK
     Route: 048

REACTIONS (2)
  - Fixed eruption [Recovered/Resolved with Sequelae]
  - Therapeutic product cross-reactivity [Unknown]
